FAERS Safety Report 6711667-7 (Version None)
Quarter: 2010Q2

REPORT INFORMATION
  Report Type: 
  Country: None (occurrence: None)
  Receive Date: 20100505
  Receipt Date: 20100430
  Transmission Date: 20101027
  Serious: Yes (Death)
  Sender: FDA-Public Use
  Company Number: JP-ROCHE-693079

PATIENT
  Age: 30 Year
  Sex: Male

DRUGS (2)
  1. ANEXATE [Suspect]
     Route: 042
  2. DORMICUM (INJ) [Suspect]
     Route: 065

REACTIONS (2)
  - BRAIN OEDEMA [None]
  - DELAYED RECOVERY FROM ANAESTHESIA [None]
